FAERS Safety Report 9786032 (Version 1)
Quarter: 2013Q4

REPORT INFORMATION
  Report Type: Spontaneous
  Country: GB (occurrence: GB)
  Receive Date: 20131227
  Receipt Date: 20131227
  Transmission Date: 20140711
  Serious: Yes (Other)
  Sender: FDA-Public Use
  Company Number: GB-ASTRAZENECA-2013SE92680

PATIENT
  Age: 71 Year
  Sex: Female

DRUGS (7)
  1. OMEPRAZOLE [Suspect]
     Indication: DUODENAL ULCER
     Route: 048
  2. OMEPRAZOLE [Suspect]
     Indication: DUODENAL ULCER
     Dosage: REDUCED TO HALF
     Route: 048
  3. INTRAVENOUS IMMUNOGLOBULIN (IVIG) [Concomitant]
     Indication: DEMYELINATING POLYNEUROPATHY
     Dosage: THREE WEEKLY
     Route: 042
  4. INTRAVENOUS IMMUNOGLOBULIN (IVIG) [Concomitant]
     Indication: MONOCLONAL GAMMOPATHY
     Dosage: THREE WEEKLY
     Route: 042
  5. INTRAVENOUS IMMUNOGLOBULIN (IVIG) [Concomitant]
     Indication: DEMYELINATING POLYNEUROPATHY
     Dosage: 2 G/KG
     Route: 042
  6. INTRAVENOUS IMMUNOGLOBULIN (IVIG) [Concomitant]
     Indication: MONOCLONAL GAMMOPATHY
     Dosage: 2 G/KG
     Route: 042
  7. INDAPAMIDE [Concomitant]

REACTIONS (4)
  - Hypomagnesaemia [Recovered/Resolved]
  - Condition aggravated [Recovering/Resolving]
  - Hypokalaemia [Recovered/Resolved]
  - Hypocalcaemia [Recovered/Resolved]
